FAERS Safety Report 5684901-2 (Version None)
Quarter: 2008Q1

REPORT INFORMATION
  Report Type: 
  Country: None (occurrence: None)
  Receive Date: 20080328
  Receipt Date: 20071213
  Transmission Date: 20080703
  Serious: Yes (Hospitalization)
  Sender: FDA-Public Use
  Company Number: US-BRISTOL-MYERS SQUIBB COMPANY-13996970

PATIENT
  Age: 72 Year
  Sex: Female

DRUGS (4)
  1. ERBITUX [Suspect]
     Indication: NEOPLASM MALIGNANT
     Route: 042
     Dates: start: 20071112
  2. BENADRYL [Concomitant]
  3. RADIATION THERAPY [Concomitant]
  4. ALBUTEROL [Concomitant]

REACTIONS (2)
  - ANAPHYLACTIC REACTION [None]
  - RESPIRATORY FAILURE [None]
